FAERS Safety Report 9191141 (Version 1)
Quarter: 2013Q1

REPORT INFORMATION
  Report Type: Spontaneous
  Country: GB (occurrence: GB)
  Receive Date: 20130326
  Receipt Date: 20130326
  Transmission Date: 20140127
  Serious: Yes (Other)
  Sender: FDA-Public Use
  Company Number: GB-BRISTOL-MYERS SQUIBB COMPANY-18592758

PATIENT
  Age: 33 Year
  Sex: Male

DRUGS (7)
  1. ATAZANAVIR [Suspect]
     Indication: HEPATITIS C
     Dosage: DOSAGE FORM: UNSPECIFIED
     Dates: start: 201204
  2. TELAPREVIR [Suspect]
     Indication: HEPATITIS C
     Dosage: 1 DF:1 TAB:20MG
     Route: 048
     Dates: start: 201204
  3. TRUVADA [Suspect]
     Indication: HEPATITIS C
     Dosage: DOSAGE FORM: UNSPECIFIED
     Dates: start: 201204
  4. RALTEGRAVIR [Suspect]
     Indication: HEPATITIS C
     Dosage: DOSAGE FORM: UNSPECIFIED
     Dates: start: 201204
  5. RITONAVIR [Suspect]
     Indication: HEPATITIS C
     Dosage: DOSAGE FORM: UNSPECIFIED
     Dates: start: 201204
  6. INTERFERON ALFA [Concomitant]
     Indication: HEPATITIS C
     Dosage: DOSAGE FORM: UNSPECIFIED
     Dates: start: 2008
  7. RIBAVIRIN [Concomitant]
     Indication: HEPATITIS C
     Dosage: DOSAGE FORM: UNSPECIFIED
     Dates: start: 2008

REACTIONS (5)
  - Haemophilic arthropathy [Unknown]
  - Erectile dysfunction [Unknown]
  - Depressed mood [Unknown]
  - Fatigue [Unknown]
  - Off label use [Unknown]
